FAERS Safety Report 14689197 (Version 2)
Quarter: 2018Q2

REPORT INFORMATION
  Report Type: Spontaneous
  Country: US (occurrence: US)
  Receive Date: 20180328
  Receipt Date: 20180424
  Transmission Date: 20180711
  Serious: No
  Sender: FDA-Public Use
  Company Number: US-ASTRAZENECA-2018SE32302

PATIENT
  Age: 20097 Day
  Sex: Female
  Weight: 85.7 kg

DRUGS (2)
  1. BYDUREON BCISE [Suspect]
     Active Substance: EXENATIDE
     Indication: TYPE 2 DIABETES MELLITUS
     Route: 058
     Dates: start: 20180224
  2. LISINOPRIL. [Suspect]
     Active Substance: LISINOPRIL
     Indication: DIABETES MELLITUS
     Route: 048

REACTIONS (9)
  - Injection site mass [Recovering/Resolving]
  - Incorrect route of drug administration [Unknown]
  - Pruritus [Recovering/Resolving]
  - Wrong technique in product usage process [Unknown]
  - Injection site pain [Unknown]
  - Nausea [Unknown]
  - Injection site haemorrhage [Recovered/Resolved]
  - Mental impairment [Unknown]
  - Product quality issue [Unknown]

NARRATIVE: CASE EVENT DATE: 20180303
